FAERS Safety Report 7578175-5 (Version None)
Quarter: 2011Q2

REPORT INFORMATION
  Report Type: 
  Country: None (occurrence: None)
  Receive Date: 20110628
  Receipt Date: 20110607
  Transmission Date: 20111010
  Serious: Yes (Hospitalization, Congenital Anomaly)
  Sender: FDA-Public Use
  Company Number: A0932974A

PATIENT
  Sex: Female
  Weight: 2.1 kg

DRUGS (1)
  1. PAXIL [Suspect]
     Indication: MAJOR DEPRESSION
     Dosage: 20MG AT NIGHT
     Route: 064

REACTIONS (5)
  - PATENT DUCTUS ARTERIOSUS [None]
  - ATRIAL SEPTAL DEFECT [None]
  - EXTRAPYRAMIDAL DISORDER [None]
  - DRUG WITHDRAWAL SYNDROME [None]
  - DRUG EXPOSURE DURING PREGNANCY [None]
